FAERS Safety Report 5252869-9 (Version None)
Quarter: 2007Q1

REPORT INFORMATION
  Report Type: 
  Country: None (occurrence: None)
  Receive Date: 20070227
  Receipt Date: 20070211
  Transmission Date: 20070707
  Serious: Yes (Other)
  Sender: FDA-Public Use
  Company Number: S07-ESP-00816-01

PATIENT
  Sex: Male

DRUGS (3)
  1. ESCITALOPRAM [Suspect]
  2. OPIOID [Suspect]
  3. ERTAPENEM [Suspect]

REACTIONS (3)
  - DRUG DOSE OMISSION [None]
  - DRUG INTERACTION [None]
  - SEROTONIN SYNDROME [None]
